FAERS Safety Report 9997997 (Version 1)
Quarter: 2014Q1

REPORT INFORMATION
  Report Type: Spontaneous
  Country: ES (occurrence: ES)
  Receive Date: 20140311
  Receipt Date: 20140311
  Transmission Date: 20141002
  Serious: Yes (Other)
  Sender: FDA-Public Use
  Company Number: ES-GILEAD-2014-0096583

PATIENT
  Age: 89 Year
  Sex: Female

DRUGS (1)
  1. RANOLAZINE [Suspect]
     Indication: MYOCARDIAL ISCHAEMIA
     Dosage: 375 MG, BID
     Route: 048
     Dates: start: 20140109, end: 20140213

REACTIONS (5)
  - Hypertensive crisis [Recovered/Resolved]
  - Hyperglycaemia [Recovered/Resolved]
  - Dizziness [Recovered/Resolved]
  - Dysuria [Recovered/Resolved]
  - Hypoaesthesia oral [Recovered/Resolved]
